FAERS Safety Report 10010992 (Version 1)
Quarter: 2014Q1

REPORT INFORMATION
  Report Type: Spontaneous
  Country: FI (occurrence: None)
  Receive Date: 20140311
  Receipt Date: 20140311
  Transmission Date: 20141002
  Serious: Yes (Other)
  Sender: FDA-Public Use
  Company Number: FK201400720

PATIENT
  Age: 61 Year
  Sex: Male

DRUGS (13)
  1. VANCOMYCIN (MANUFACTURER UNKNOWN) (VANCOMYCIN) (VANCOMYCIN) [Suspect]
     Indication: DEVICE RELATED INFECTION
  2. MEROPENEM [Suspect]
     Indication: DEVICE RELATED INFECTION
  3. PANTOPRAZOLE [Suspect]
     Indication: PRODUCT USED FOR UNKNOWN INDICATION
     Dosage: OCCASIONALLY
  4. RIFAMPICIN (RIFAMPICIN) [Suspect]
     Indication: DEVICE RELATED INFECTION
  5. LEVOFLOXACIN (LEVOFLOXACIN) [Suspect]
     Indication: DEVICE RELATED INFECTION
  6. DAPTOMYCIN [Concomitant]
  7. METRONIDAZOLE [Concomitant]
  8. NAPROXEN [Concomitant]
  9. PARACETAMOL [Concomitant]
  10. CODEINE PHOSPHATE [Concomitant]
  11. METRONIDAZOLE [Concomitant]
  12. CEFUROXIME [Concomitant]
  13. CLOXACILLIN [Concomitant]

REACTIONS (2)
  - Toxic epidermal necrolysis [None]
  - Drug reaction with eosinophilia and systemic symptoms [None]
